FAERS Safety Report 11426330 (Version 1)
Quarter: 2015Q3

REPORT INFORMATION
  Report Type: Spontaneous
  Country: US (occurrence: US)
  Receive Date: 20150821
  Receipt Date: 20150821
  Transmission Date: 20151125
  Serious: No
  Sender: FDA-Public Use
  Company Number: US-ELI_LILLY_AND_COMPANY-US201305006630

PATIENT
  Age: 38 Year
  Sex: Female

DRUGS (5)
  1. DUREZOL [Concomitant]
     Active Substance: DIFLUPREDNATE
  2. TIMOLOL. [Concomitant]
     Active Substance: TIMOLOL
     Dosage: UNK, BID
  3. LABETALOL [Concomitant]
     Active Substance: LABETALOL\LABETALOL HYDROCHLORIDE
     Dosage: UNK, BID
  4. HUMULIN N [Suspect]
     Active Substance: INSULIN HUMAN
     Indication: DIABETES MELLITUS
     Dosage: 11 U, EACH MORNING
     Dates: start: 20130520
  5. HUMULIN N [Suspect]
     Active Substance: INSULIN HUMAN
     Dosage: 4 U, EACH EVENING
     Dates: start: 20130520

REACTIONS (1)
  - Exposure during pregnancy [Not Recovered/Not Resolved]

NARRATIVE: CASE EVENT DATE: 20130520
